FAERS Safety Report 13037154 (Version 4)
Quarter: 2018Q1

REPORT INFORMATION
  Report Type: Spontaneous
  Country: GB (occurrence: GB)
  Receive Date: 20161216
  Receipt Date: 20180102
  Transmission Date: 20180508
  Serious: Yes (Other)
  Sender: FDA-Public Use
  Company Number: GB-CELGENEUS-GBR-2016090530

PATIENT
  Age: 73 Year
  Sex: Male
  Weight: 90 kg

DRUGS (19)
  1. GEMCITABINE [Suspect]
     Active Substance: GEMCITABINE\GEMCITABINE HYDROCHLORIDE
     Dosage: 1222.6
     Route: 041
     Dates: start: 20160810
  2. ASPRIN [Concomitant]
     Active Substance: ASPIRIN
     Indication: CARDIAC DISORDER
  3. ABRAXANE [Suspect]
     Active Substance: PACLITAXEL
     Dosage: 1222.6 MG
     Route: 041
  4. GEMCITABINE [Suspect]
     Active Substance: GEMCITABINE\GEMCITABINE HYDROCHLORIDE
     Dosage: 1222.6
     Route: 041
     Dates: start: 20160901
  5. PERINDOPRIL [Concomitant]
     Active Substance: PERINDOPRIL
     Indication: CARDIAC DISORDER
     Dosage: 2.5 MG
     Route: 048
     Dates: start: 200809
  6. ABRAXANE [Suspect]
     Active Substance: PACLITAXEL
     Dosage: 75
     Route: 041
     Dates: start: 20160726
  7. ABRAXANE [Suspect]
     Active Substance: PACLITAXEL
     Dosage: 1222.6 MG
     Route: 041
  8. SIMVASTATIN. [Concomitant]
     Active Substance: SIMVASTATIN
     Indication: TRANSIENT ISCHAEMIC ATTACK
     Dosage: 40 MG
     Route: 048
     Dates: start: 200809
  9. ASPRIN [Concomitant]
     Active Substance: ASPIRIN
     Indication: TRANSIENT ISCHAEMIC ATTACK
     Dosage: 75 MG
     Route: 048
     Dates: start: 200809
  10. ABRAXANE [Suspect]
     Active Substance: PACLITAXEL
     Dosage: 1600 MG
     Route: 041
  11. OMEPRAZOLE. [Concomitant]
     Active Substance: OMEPRAZOLE
     Indication: GASTRITIS PROPHYLAXIS
     Dosage: 20 MG
     Route: 048
     Dates: start: 20140523
  12. GAVISCON [Concomitant]
     Active Substance: ALUMINUM HYDROXIDE\MAGNESIUM CARBONATE
     Indication: DYSPEPSIA
     Dosage: 15 MG
     Route: 048
     Dates: start: 2016
  13. PERINDOPRIL [Concomitant]
     Active Substance: PERINDOPRIL
     Indication: TRANSIENT ISCHAEMIC ATTACK
  14. ABRAXANE [Suspect]
     Active Substance: PACLITAXEL
     Indication: PALLIATIVE CARE
     Dosage: 200 MG
     Route: 041
     Dates: start: 20160810, end: 20160830
  15. ABRAXANE [Suspect]
     Active Substance: PACLITAXEL
     Dosage: 155 MG
     Route: 041
     Dates: start: 20160831
  16. SIMVASTATIN. [Concomitant]
     Active Substance: SIMVASTATIN
     Indication: CARDIAC DISORDER
  17. ABRAXANE [Suspect]
     Active Substance: PACLITAXEL
     Dosage: DOSE REDUCED TO 60%
     Route: 041
  18. GEMCITABINE [Suspect]
     Active Substance: GEMCITABINE\GEMCITABINE HYDROCHLORIDE
     Indication: PALLIATIVE CARE
     Dosage: 1223.6 MG
     Route: 041
     Dates: start: 20160810
  19. DOMPERIDONE [Concomitant]
     Active Substance: DOMPERIDONE
     Indication: NAUSEA
     Dosage: 10 MG
     Route: 048
     Dates: start: 20160810

REACTIONS (10)
  - Alopecia [Not Recovered/Not Resolved]
  - Neutrophil count decreased [Recovered/Resolved]
  - Muscle spasms [Not Recovered/Not Resolved]
  - White blood cell count decreased [Recovered/Resolved]
  - Fatigue [Not Recovered/Not Resolved]
  - Disease progression [Unknown]
  - Mucosal inflammation [Recovered/Resolved]
  - Dyspnoea [Not Recovered/Not Resolved]
  - Nausea [Not Recovered/Not Resolved]
  - Hyperglycaemia [Not Recovered/Not Resolved]

NARRATIVE: CASE EVENT DATE: 20160815
